FAERS Safety Report 10192511 (Version 4)
Quarter: 2015Q2

REPORT INFORMATION
  Report Type: Report from Study
  Country: BR (occurrence: BR)
  Receive Date: 20140523
  Receipt Date: 20150615
  Transmission Date: 20150821
  Serious: Yes (Other)
  Sender: FDA-Public Use
  Company Number: PHHY2014BR063046

PATIENT
  Sex: Female
  Weight: 40 kg

DRUGS (3)
  1. ZELMAC [Concomitant]
     Active Substance: TEGASEROD
     Indication: DYSPEPSIA
     Dosage: 2 DF, QD
     Route: 065
     Dates: start: 2009
  2. NEXIUM I.V. [Concomitant]
     Active Substance: ESOMEPRAZOLE SODIUM
     Indication: DYSPEPSIA
     Dosage: 1 DF, DAILY
     Route: 065
     Dates: start: 2012
  3. ACLASTA [Suspect]
     Active Substance: ZOLEDRONIC ACID
     Indication: OSTEOPOROSIS
     Dosage: 1 DF, EVERY YEAR
     Route: 065
     Dates: start: 2008

REACTIONS (5)
  - Urinary tract infection enterococcal [Recovering/Resolving]
  - Urinary tract disorder [Recovering/Resolving]
  - Abdominal pain upper [Recovering/Resolving]
  - Gastritis [Recovering/Resolving]
  - Quadriplegia [Not Recovered/Not Resolved]

NARRATIVE: CASE EVENT DATE: 2013
